FAERS Safety Report 19309852 (Version 1)
Quarter: 2021Q2

REPORT INFORMATION
  Report Type: Spontaneous
  Country: US (occurrence: US)
  Receive Date: 20210526
  Receipt Date: 20210526
  Transmission Date: 20210717
  Serious: Yes (Other)
  Sender: FDA-Public Use
  Company Number: US-SA-2021SA170376

PATIENT
  Sex: Female

DRUGS (2)
  1. DUPIXENT [Suspect]
     Active Substance: DUPILUMAB
     Indication: SINUSITIS
  2. DUPIXENT [Suspect]
     Active Substance: DUPILUMAB
     Indication: RHINITIS ALLERGIC
     Dosage: UNK
     Route: 058
     Dates: start: 202001

REACTIONS (4)
  - Injection site swelling [Unknown]
  - Exposure during pregnancy [Unknown]
  - Injection site pain [Unknown]
  - Abortion spontaneous [Unknown]
